FAERS Safety Report 8215430-X (Version None)
Quarter: 2012Q1

REPORT INFORMATION
  Report Type: 
  Country: None (occurrence: None)
  Receive Date: 20120314
  Receipt Date: 20120228
  Transmission Date: 20120608
  Serious: Yes (Other)
  Sender: FDA-Public Use
  Company Number: 2012P1004189

PATIENT
  Age: 13 Year
  Sex: Female
  Weight: 54.4316 kg

DRUGS (1)
  1. SOLODYN [Suspect]
     Indication: ACNE
     Dosage: 105 MG;QD;PO
     Route: 048
     Dates: start: 20111201, end: 20120101

REACTIONS (3)
  - HEADACHE [None]
  - OPTIC NEURITIS [None]
  - VISION BLURRED [None]
